FAERS Safety Report 22588642 (Version 1)
Quarter: 2023Q2

REPORT INFORMATION
  Report Type: Report from Study
  Country: US (occurrence: US)
  Receive Date: 20230612
  Receipt Date: 20230612
  Transmission Date: 20230722
  Serious: Yes (Hospitalization)
  Sender: FDA-Public Use
  Company Number: US-ABBVIE-5284229

PATIENT
  Age: 40 Year
  Sex: Male

DRUGS (2)
  1. RINVOQ [Suspect]
     Active Substance: UPADACITINIB
     Indication: Product used for unknown indication
     Route: 048
     Dates: start: 20230313
  2. REMICADE [Concomitant]
     Active Substance: INFLIXIMAB
     Indication: Colitis ulcerative

REACTIONS (1)
  - Cryptosporidiosis infection [Recovering/Resolving]

NARRATIVE: CASE EVENT DATE: 20230409
